FAERS Safety Report 10908052 (Version 1)
Quarter: 2015Q1

REPORT INFORMATION
  Report Type: Report from Study
  Country: CA (occurrence: CA)
  Receive Date: 20150312
  Receipt Date: 20150312
  Transmission Date: 20150721
  Serious: Yes (Other)
  Sender: FDA-Public Use
  Company Number: CA-ABBVIE-15K-028-1356528-00

PATIENT
  Sex: Female
  Weight: 66.74 kg

DRUGS (2)
  1. ACTONEL [Concomitant]
     Active Substance: RISEDRONATE SODIUM
     Indication: OSTEOPOROSIS
  2. HUMIRA [Suspect]
     Active Substance: ADALIMUMAB
     Indication: COLITIS ULCERATIVE
     Route: 058
     Dates: start: 20130618, end: 2014

REACTIONS (3)
  - Drug ineffective [Not Recovered/Not Resolved]
  - Large intestinal stenosis [Recovering/Resolving]
  - Large intestinal obstruction [Recovering/Resolving]
